FAERS Safety Report 10862702 (Version 1)
Quarter: 2015Q1

REPORT INFORMATION
  Report Type: Spontaneous
  Country: KR (occurrence: KR)
  Receive Date: 20150223
  Receipt Date: 20150223
  Transmission Date: 20150721
  Serious: Yes (Hospitalization)
  Sender: FDA-Public Use
  Company Number: KR-SA-2015SA010684

PATIENT
  Age: 31 Year
  Sex: Female

DRUGS (4)
  1. LEFLUNOMIDE. [Suspect]
     Active Substance: LEFLUNOMIDE
     Indication: RHEUMATOID ARTHRITIS
     Route: 065
  2. HYDROXYCHLOROQUINE [Concomitant]
     Active Substance: HYDROXYCHLOROQUINE
  3. ACECLOFENAC [Concomitant]
     Active Substance: ACECLOFENAC
  4. PREDNISOLONE. [Concomitant]
     Active Substance: PREDNISOLONE

REACTIONS (27)
  - Pruritus [Recovered/Resolved with Sequelae]
  - Blister [Recovered/Resolved with Sequelae]
  - Pyrexia [Recovered/Resolved with Sequelae]
  - Visual impairment [Unknown]
  - Toxic epidermal necrolysis [Recovered/Resolved with Sequelae]
  - Skin lesion [Recovered/Resolved with Sequelae]
  - Dermatitis [Recovered/Resolved with Sequelae]
  - Dermatitis bullous [Recovered/Resolved with Sequelae]
  - Inflammation [Recovered/Resolved with Sequelae]
  - Pain [Recovered/Resolved with Sequelae]
  - Oral pain [Recovered/Resolved with Sequelae]
  - Oedema [Recovered/Resolved with Sequelae]
  - White blood cell count increased [Recovered/Resolved with Sequelae]
  - Blood lactate dehydrogenase increased [Recovered/Resolved with Sequelae]
  - C-reactive protein increased [Recovered/Resolved with Sequelae]
  - Speech disorder [Unknown]
  - Conjunctivitis [Recovered/Resolved with Sequelae]
  - Staphylococcal infection [Recovered/Resolved with Sequelae]
  - Rash maculo-papular [Recovered/Resolved with Sequelae]
  - Mouth ulceration [Recovered/Resolved with Sequelae]
  - Rash [Recovered/Resolved with Sequelae]
  - Macule [Recovered/Resolved with Sequelae]
  - Erythema [Recovered/Resolved with Sequelae]
  - Nikolsky^s sign [Recovered/Resolved with Sequelae]
  - Stomatitis [Recovered/Resolved with Sequelae]
  - Burning sensation [Recovered/Resolved with Sequelae]
  - Post inflammatory pigmentation change [Unknown]
